FAERS Safety Report 9821120 (Version 1)
Quarter: 2013Q4

REPORT INFORMATION
  Report Type: Spontaneous
  Country: US (occurrence: None)
  Receive Date: 20131028
  Receipt Date: 20131028
  Transmission Date: 20140711
  Serious: Yes (Hospitalization)
  Sender: FDA-Public Use
  Company Number: 2013US001404

PATIENT
  Age: 47 Year
  Sex: Female
  Weight: 100 kg

DRUGS (7)
  1. ICLUSIG [Suspect]
     Indication: CHRONIC MYELOID LEUKAEMIA
     Route: 048
  2. BACTRIM (SULFAMETHOXAZOLE, TRIMETHOPRIM) [Concomitant]
  3. ACYLOVIR (ACICLOVIR) [Concomitant]
  4. POTASSIUM (POTASSIUM) [Suspect]
  5. MAGNESIUM OXIDE (MAGNESSIUM OXIDE) [Concomitant]
  6. LANTUS (INSULIN GLARGINE) [Concomitant]
  7. GLIPIZIDE) [Concomitant]

REACTIONS (1)
  - Pleural effusion [None]
